FAERS Safety Report 24916615 (Version 1)
Quarter: 2025Q1

REPORT INFORMATION
  Report Type: Spontaneous
  Country: US (occurrence: None)
  Receive Date: 20250131
  Receipt Date: 20250131
  Transmission Date: 20250409
  Serious: Yes (Life-Threatening, Hospitalization)
  Sender: FDA-CTU
  Company Number: None

PATIENT
  Age: 3 Year
  Sex: Male
  Weight: 15 kg

DRUGS (1)
  1. DEXMEDETOMIDINE [Suspect]
     Active Substance: DEXMEDETOMIDINE

REACTIONS (7)
  - Dyspnoea [None]
  - Dyspnoea [None]
  - Oxygen saturation decreased [None]
  - Cardiac arrest [None]
  - Therapy cessation [None]
  - Crying [None]
  - Heart rate increased [None]

NARRATIVE: CASE EVENT DATE: 20230614
